FAERS Safety Report 20289838 (Version 1)
Quarter: 2022Q1

REPORT INFORMATION
  Report Type: Spontaneous
  Country: CA (occurrence: CA)
  Receive Date: 20220104
  Receipt Date: 20220104
  Transmission Date: 20220424
  Serious: Yes (Death, Other)
  Sender: FDA-Public Use
  Company Number: CA-SAMSUNG BIOEPIS-SB-2021-30730

PATIENT
  Age: 77 Year
  Sex: Male
  Weight: 86 kg

DRUGS (1)
  1. INFLIXIMAB [Suspect]
     Active Substance: INFLIXIMAB
     Indication: Crohn^s disease
     Route: 042

REACTIONS (10)
  - Death [Fatal]
  - Asthenia [Fatal]
  - Gait disturbance [Fatal]
  - Haematochezia [Fatal]
  - Hypertension [Fatal]
  - Infusion site extravasation [Fatal]
  - Vein disorder [Fatal]
  - Inappropriate schedule of product administration [Fatal]
  - Off label use [Fatal]
  - Intentional product use issue [Fatal]
